FAERS Safety Report 6283401-9 (Version None)
Quarter: 2009Q3

REPORT INFORMATION
  Report Type: 
  Country: None (occurrence: None)
  Receive Date: 20090724
  Receipt Date: 20090722
  Transmission Date: 20100115
  Serious: Yes (Other)
  Sender: FDA-Public Use
  Company Number: US-B.I. PHARMACEUTICALS,INC./RIDGEFIELD-2009-BP-08710BP

PATIENT
  Sex: Female

DRUGS (4)
  1. SPIRIVA [Suspect]
     Indication: BRONCHITIS
     Dosage: 18 MCG
     Route: 055
     Dates: start: 20090720, end: 20090721
  2. CLIMARA [Concomitant]
     Indication: HORMONE REPLACEMENT THERAPY
  3. LISINOPRIL [Concomitant]
     Indication: HYPERTENSION
  4. COPAXONE [Concomitant]

REACTIONS (1)
  - CHEST PAIN [None]
